FAERS Safety Report 9479658 (Version 2)
Quarter: 2013Q3

REPORT INFORMATION
  Report Type: Report from Study
  Country: JP (occurrence: JP)
  Receive Date: 20130827
  Receipt Date: 20130827
  Transmission Date: 20140515
  Serious: Yes (Hospitalization)
  Sender: FDA-Public Use
  Company Number: PHHO2009JP15742

PATIENT
  Age: 67 Year
  Sex: Male
  Weight: 58 kg

DRUGS (9)
  1. ALISKIREN [Suspect]
     Indication: CARDIOVASCULAR DISORDER
     Route: 048
     Dates: start: 20090203
  2. DIOVAN [Concomitant]
     Indication: HYPERTENSION
  3. ALLEGRA [Concomitant]
     Indication: URTICARIA
  4. MEVALOTIN [Concomitant]
     Indication: LIPID METABOLISM DISORDER
  5. RHYTHMY [Concomitant]
     Indication: SLEEP DISORDER
  6. NORVASC [Concomitant]
     Indication: HYPERTENSION
  7. GOSHAJINKIGAN [Concomitant]
     Indication: SPINAL COLUMN STENOSIS
  8. LANTUS [Concomitant]
     Indication: DIABETES MELLITUS
  9. HUMALOG [Concomitant]
     Indication: DIABETES MELLITUS

REACTIONS (3)
  - Cataract [Recovered/Resolved]
  - Concomitant disease progression [Recovered/Resolved]
  - Visual acuity reduced [Recovered/Resolved]
